FAERS Safety Report 8933530 (Version 1)
Quarter: 2012Q4

REPORT INFORMATION
  Report Type: 
  Country: US (occurrence: US)
  Receive Date: 20121128
  Receipt Date: 20121128
  Transmission Date: 20130627
  Serious: No
  Sender: FDA-Public Use
  Company Number: US-ABBOTT-12P-163-0999787-00

PATIENT
  Sex: Male
  Weight: 90.8 kg

DRUGS (3)
  1. ANDROGEL [Suspect]
     Indication: BLOOD TESTOSTERONE DECREASED
     Dosage: 2 pumps daily
     Dates: start: 2011, end: 2012
  2. ANDROGEL [Suspect]
     Dosage: 1 pump daily
     Dates: start: 2012, end: 2012
  3. COUMADIN [Concomitant]
     Indication: PRODUCT USED FOR UNKNOWN INDICATION

REACTIONS (3)
  - Polyuria [Recovering/Resolving]
  - Urine flow decreased [Recovering/Resolving]
  - Blood pressure increased [Unknown]
